FAERS Safety Report 4809800-7 (Version None)
Quarter: 2005Q4

REPORT INFORMATION
  Report Type: 
  Country: None (occurrence: None)
  Receive Date: 20051021
  Receipt Date: 20051007
  Transmission Date: 20060501
  Serious: Yes (Other)
  Sender: FDA-Public Use
  Company Number: 2005-DE-04162GD

PATIENT

DRUGS (4)
  1. ASPIRIN [Suspect]
  2. COCAINE (COCAINE) [Suspect]
  3. BISOLTUSSIN [Suspect]
  4. MARIJUANA (CANNABIS SATIVA) [Suspect]

REACTIONS (1)
  - CEREBRAL HAEMORRHAGE [None]
